FAERS Safety Report 9057840 (Version 1)
Quarter: 2013Q1

REPORT INFORMATION
  Report Type: Spontaneous
  Country: US (occurrence: None)
  Receive Date: 20130204
  Receipt Date: 20130204
  Transmission Date: 20140127
  Serious: Yes (Disabling, Other)
  Sender: FDA-Public Use
  Company Number: None

PATIENT
  Age: 79 Year
  Sex: Male
  Weight: 83.92 kg

DRUGS (1)
  1. FINASTERIDE [Suspect]
     Indication: PROSTATISM
     Dosage: TABS 1.0 DAILY PO
     Dates: start: 20120815, end: 20121223

REACTIONS (3)
  - Myalgia [None]
  - Muscular weakness [None]
  - Myopathy [None]
